FAERS Safety Report 7785531-9 (Version None)
Quarter: 2011Q3

REPORT INFORMATION
  Report Type: 
  Country: None (occurrence: None)
  Receive Date: 20110929
  Receipt Date: 20110919
  Transmission Date: 20111222
  Serious: Yes (Hospitalization)
  Sender: FDA-Public Use
  Company Number: US-JNJFOC-20110908699

PATIENT
  Sex: Male
  Weight: 66.5 kg

DRUGS (6)
  1. MESALAMINE [Concomitant]
     Route: 054
  2. PREDNISONE [Concomitant]
  3. MESALAMINE [Concomitant]
     Route: 048
  4. INFLIXIMAB, RECOMBINANT [Suspect]
     Indication: INFLAMMATORY BOWEL DISEASE
     Route: 042
     Dates: start: 20101224, end: 20110413
  5. AZATHIOPRINE [Concomitant]
  6. PROBIOTICS [Concomitant]

REACTIONS (1)
  - COLITIS ULCERATIVE [None]
